FAERS Safety Report 6206944-2 (Version None)
Quarter: 2009Q2

REPORT INFORMATION
  Report Type: 
  Country: None (occurrence: None)
  Receive Date: 20090528
  Receipt Date: 20090520
  Transmission Date: 20091009
  Serious: Yes (Other)
  Sender: FDA-Public Use
  Company Number: B0560850A

PATIENT
  Age: 60 Year
  Sex: Male

DRUGS (3)
  1. AVANDIA [Suspect]
     Route: 048
  2. INSULIN [Concomitant]
  3. CORTISONE [Concomitant]

REACTIONS (3)
  - CONDITION AGGRAVATED [None]
  - HAEMATOCRIT DECREASED [None]
  - MYELOFIBROSIS [None]
